FAERS Safety Report 8469371-3 (Version None)
Quarter: 2012Q2

REPORT INFORMATION
  Report Type: 
  Country: None (occurrence: None)
  Receive Date: 20120626
  Receipt Date: 20120611
  Transmission Date: 20120825
  Serious: No
  Sender: FDA-Public Use
  Company Number: US-ASTRAZENECA-2012SE39252

PATIENT
  Sex: Female

DRUGS (5)
  1. CALCIUM CARBONATE [Concomitant]
  2. MAGNESIUM HYDROXIDE TAB [Concomitant]
  3. ANASTROZOLE [Suspect]
     Route: 048
  4. FEMARA [Concomitant]
  5. GAS-X [Concomitant]

REACTIONS (2)
  - FLATULENCE [None]
  - ABDOMINAL PAIN UPPER [None]
